FAERS Safety Report 11080375 (Version 1)
Quarter: 2015Q2

REPORT INFORMATION
  Report Type: Spontaneous
  Country: US (occurrence: None)
  Receive Date: 20150429
  Receipt Date: 20150429
  Transmission Date: 20150821
  Serious: No
  Sender: FDA-Public Use
  Company Number: MED 15-112

PATIENT
  Age: 6 Year
  Sex: Male
  Weight: 19.8 kg

DRUGS (4)
  1. ADVAIR HFA [Concomitant]
     Active Substance: FLUTICASONE PROPIONATE\SALMETEROL XINAFOATE
  2. LACTAID [Concomitant]
     Active Substance: LACTASE
  3. SUCRAID [Suspect]
     Active Substance: SACROSIDASE
     Indication: SUCRASE-ISOMALTASE DEFICIENCY
     Dosage: 1 ML ORALLY MEAL/SNACK
     Route: 048
     Dates: start: 201206, end: 20150410
  4. SINGULAIR [Concomitant]
     Active Substance: MONTELUKAST SODIUM

REACTIONS (14)
  - Constipation [None]
  - Dark circles under eyes [None]
  - Pruritus [None]
  - Dehydration [None]
  - Lethargy [None]
  - Rash generalised [None]
  - Diarrhoea [None]
  - Hypophagia [None]
  - Rash macular [None]
  - Nausea [None]
  - Jaundice [None]
  - Abdominal pain [None]
  - Erythema [None]
  - Dermatitis allergic [None]

NARRATIVE: CASE EVENT DATE: 20150407
